FAERS Safety Report 4425044-5 (Version None)
Quarter: 2004Q3

REPORT INFORMATION
  Report Type: 
  Country: None (occurrence: None)
  Receive Date: 20040813
  Receipt Date: 20040505
  Transmission Date: 20050211
  Serious: Yes (Hospitalization)
  Sender: FDA-Public Use
  Company Number: PHNU2004DE01735

PATIENT
  Sex: Male

DRUGS (1)
  1. CO-DIOVAN [Suspect]
     Indication: HYPERTENSION
     Dates: start: 20020101

REACTIONS (14)
  - ARTHRALGIA [None]
  - ASTHENIA [None]
  - BACK PAIN [None]
  - BLOOD PRESSURE FLUCTUATION [None]
  - CEREBROVASCULAR ACCIDENT [None]
  - DIZZINESS [None]
  - DYSURIA [None]
  - EYE BURNS [None]
  - GAIT DISTURBANCE [None]
  - HYPOTENSION [None]
  - MEMORY IMPAIRMENT [None]
  - SOMNOLENCE [None]
  - VERTIGO [None]
  - VISUAL DISTURBANCE [None]
